FAERS Safety Report 7313244-6 (Version None)
Quarter: 2011Q1

REPORT INFORMATION
  Report Type: 
  Country: None (occurrence: None)
  Receive Date: 20110216
  Receipt Date: 20110216
  Transmission Date: 20110831
  Serious: Yes (Hospitalization)
  Sender: FDA-Public Use
  Company Number: None

PATIENT
  Age: 39 Year
  Sex: Female
  Weight: 71.4 kg

DRUGS (1)
  1. XELODA [Suspect]
     Dosage: 1000 MG BID
     Dates: start: 20110124, end: 20110206

REACTIONS (5)
  - DIARRHOEA [None]
  - NAUSEA [None]
  - HEADACHE [None]
  - LOSS OF CONSCIOUSNESS [None]
  - CHEST DISCOMFORT [None]
